APPROVED DRUG PRODUCT: OMNIPAQUE 210
Active Ingredient: IOHEXOL
Strength: 45.3%
Dosage Form/Route: INJECTABLE;INJECTION
Application: N018956 | Product #006
Applicant: GE HEALTHCARE
Approved: Jun 30, 1989 | RLD: No | RS: No | Type: DISCN